FAERS Safety Report 9682578 (Version 2)
Quarter: 2013Q4

REPORT INFORMATION
  Report Type: Spontaneous
  Country: US (occurrence: US)
  Receive Date: 20131112
  Receipt Date: 20131112
  Transmission Date: 20140711
  Serious: Yes (Other)
  Sender: FDA-Public Use
  Company Number: US-UCBSA-094799

PATIENT
  Sex: Male
  Weight: 93 kg

DRUGS (2)
  1. NEUPRO [Suspect]
     Indication: PARKINSON^S DISEASE
     Dosage: STRENGTH:8 MG
     Route: 062
  2. NEUPRO [Suspect]
     Indication: RESTLESS LEGS SYNDROME
     Dosage: STRENGTH:8 MG
     Route: 062

REACTIONS (4)
  - Dysphagia [Unknown]
  - Dysphonia [Unknown]
  - Nausea [Unknown]
  - Insomnia [Unknown]
